FAERS Safety Report 23264765 (Version 1)
Quarter: 2023Q4

REPORT INFORMATION
  Report Type: Spontaneous
  Country: US (occurrence: US)
  Receive Date: 20231206
  Receipt Date: 20231206
  Transmission Date: 20240110
  Serious: No
  Sender: FDA-Public Use
  Company Number: US-JNJFOC-20231208050

PATIENT
  Age: 89 Year
  Sex: Male

DRUGS (1)
  1. ERLEADA [Suspect]
     Active Substance: APALUTAMIDE
     Indication: Product used for unknown indication
     Dosage: 60MGX4?THERAPY START DATE: APRIL/MAY 2023
     Route: 048
     Dates: start: 2023

REACTIONS (2)
  - Arthralgia [Recovering/Resolving]
  - Asthenia [Recovering/Resolving]
